FAERS Safety Report 8513311-5 (Version None)
Quarter: 2012Q3

REPORT INFORMATION
  Report Type: 
  Country: None (occurrence: None)
  Receive Date: 20120716
  Receipt Date: 20120104
  Transmission Date: 20120928
  Serious: Yes (Hospitalization, Congenital Anomaly)
  Sender: FDA-Public Use
  Company Number: US-ROCHE-1022742

PATIENT
  Age: 18 Month
  Weight: 3.178 kg

DRUGS (7)
  1. OMNICEF [Concomitant]
     Indication: OTITIS MEDIA
  2. MIMYX CREAM [Concomitant]
     Indication: DERMATITIS ATOPIC
  3. ERYTHROMYCIN [Concomitant]
     Indication: CONJUNCTIVITIS
  4. AUGMENTIN '125' [Concomitant]
     Indication: OTITIS MEDIA
  5. DESONIDE CREAM [Concomitant]
     Indication: DERMATITIS ATOPIC
  6. ZANTAC [Concomitant]
     Indication: GASTROOESOPHAGEAL REFLUX DISEASE
     Dates: start: 20100701, end: 20101201
  7. OMALIZUMAB [Suspect]
     Indication: PRODUCT USED FOR UNKNOWN INDICATION
     Dosage: LAST DOSE PRIOR TO SAE 25/SEP/2009
     Route: 064
     Dates: start: 20070208

REACTIONS (1)
  - VESICOURETERIC REFLUX [None]
